FAERS Safety Report 16421716 (Version 2)
Quarter: 2019Q3

REPORT INFORMATION
  Report Type: Spontaneous
  Country: US (occurrence: US)
  Receive Date: 20190612
  Receipt Date: 20190823
  Transmission Date: 20191004
  Serious: Yes (Hospitalization)
  Sender: FDA-Public Use
  Company Number: US-ASTRAZENECA-2019SE84268

PATIENT
  Age: 766 Month
  Sex: Female
  Weight: 63.5 kg

DRUGS (1)
  1. TUDORZA PRESSAIR [Suspect]
     Active Substance: ACLIDINIUM BROMIDE
     Indication: CHRONIC OBSTRUCTIVE PULMONARY DISEASE
     Route: 055

REACTIONS (12)
  - Productive cough [Recovered/Resolved]
  - Device malfunction [Unknown]
  - Influenza [Not Recovered/Not Resolved]
  - Weight increased [Not Recovered/Not Resolved]
  - Accidental overdose [Recovered/Resolved]
  - Pulmonary mass [Recovered/Resolved]
  - Intentional device misuse [Recovered/Resolved]
  - Dyspnoea exertional [Not Recovered/Not Resolved]
  - Intentional product misuse [Not Recovered/Not Resolved]
  - Fungal infection [Recovered/Resolved]
  - Dyspnoea [Recovered/Resolved]
  - Product dose omission [Recovered/Resolved]

NARRATIVE: CASE EVENT DATE: 201404
